FAERS Safety Report 13927397 (Version 1)
Quarter: 2017Q3

REPORT INFORMATION
  Report Type: Spontaneous
  Country: CH (occurrence: CH)
  Receive Date: 20170901
  Receipt Date: 20170901
  Transmission Date: 20171127
  Serious: Yes (Other)
  Sender: FDA-Public Use
  Company Number: CH-REGENERON PHARMACEUTICALS, INC.-2017-21211

PATIENT

DRUGS (1)
  1. EYLEA [Suspect]
     Active Substance: AFLIBERCEPT
     Indication: NEOVASCULAR AGE-RELATED MACULAR DEGENERATION
     Dosage: 0.005 ML, ONCE
     Route: 047
     Dates: start: 20130930

REACTIONS (1)
  - Posterior capsule opacification [Recovered/Resolved]
